FAERS Safety Report 11334982 (Version 1)
Quarter: 2015Q3

REPORT INFORMATION
  Report Type: Spontaneous
  Country: US (occurrence: None)
  Receive Date: 20150731
  Receipt Date: 20150731
  Transmission Date: 20151125
  Serious: Yes (Other)
  Sender: FDA-Public Use
  Company Number: None

PATIENT
  Age: 66 Year
  Sex: Female

DRUGS (7)
  1. EMSAM [Suspect]
     Active Substance: SELEGILINE
     Indication: DEPRESSION
     Route: 061
     Dates: start: 201501
  2. EMSAM [Concomitant]
     Active Substance: SELEGILINE
  3. LAMOTRIGINE. [Concomitant]
     Active Substance: LAMOTRIGINE
  4. METROFORMIN [Concomitant]
  5. GAPAPENTIN [Concomitant]
  6. ZYPREXA [Concomitant]
     Active Substance: OLANZAPINE
  7. ZOLPIDEM [Concomitant]
     Active Substance: ZOLPIDEM\ZOLPIDEM TARTRATE

REACTIONS (3)
  - Application site induration [None]
  - Deformity [None]
  - Application site reaction [None]

NARRATIVE: CASE EVENT DATE: 201501
